FAERS Safety Report 16026510 (Version 1)
Quarter: 2019Q1

REPORT INFORMATION
  Report Type: Spontaneous
  Country: US (occurrence: US)
  Receive Date: 20190302
  Receipt Date: 20190302
  Transmission Date: 20190418
  Serious: No
  Sender: FDA-Public Use
  Company Number: US-TARO-2018TAR00180

PATIENT
  Age: 64 Year
  Sex: Female
  Weight: 50.52 kg

DRUGS (1)
  1. TERCONAZOLE VAGINAL CREAM 0.4% [Suspect]
     Active Substance: TERCONAZOLE
     Indication: VULVOVAGINAL MYCOTIC INFECTION
     Dosage: 1 DOSAGE UNITS (APPLICATOR), 1X/DAY
     Route: 067
     Dates: start: 20180219

REACTIONS (4)
  - Vaginal laceration [Recovering/Resolving]
  - Circumstance or information capable of leading to medication error [Not Recovered/Not Resolved]
  - Product quality issue [Not Recovered/Not Resolved]
  - Vulvovaginal discomfort [Recovering/Resolving]

NARRATIVE: CASE EVENT DATE: 201802
